FAERS Safety Report 6239820-X (Version None)
Quarter: 2009Q2

REPORT INFORMATION
  Report Type: 
  Country: None (occurrence: None)
  Receive Date: 20090618
  Receipt Date: 20090618
  Transmission Date: 20091009
  Serious: No
  Sender: FDA-Public Use
  Company Number: None

PATIENT
  Age: 59 Year
  Sex: Female
  Weight: 63.5036 kg

DRUGS (1)
  1. ZICAM NASAL GEL MATRIXX [Suspect]
     Indication: NASOPHARYNGITIS
     Dosage: 1 SPRAY EACH NOSTRIL 4-6 HOURS NASAL
     Route: 045
     Dates: start: 20070101, end: 20070201

REACTIONS (4)
  - ANOSMIA [None]
  - DISCOMFORT [None]
  - SINUS DISORDER [None]
  - WRONG TECHNIQUE IN DRUG USAGE PROCESS [None]
